FAERS Safety Report 4553801-3 (Version None)
Quarter: 2005Q1

REPORT INFORMATION
  Report Type: 
  Country: None (occurrence: None)
  Receive Date: 20050114
  Receipt Date: 20050114
  Transmission Date: 20050727
  Serious: Yes (Other)
  Sender: FDA-Public Use
  Company Number: None

PATIENT
  Age: 50 Year
  Sex: Male
  Weight: 104.7809 kg

DRUGS (2)
  1. VIOXX [Suspect]
     Indication: KNEE OPERATION
     Dosage: 25 MG ONCE A DAY
     Dates: start: 20030825, end: 20040825
  2. VIOXX [Suspect]
     Indication: PAIN
     Dosage: 25 MG ONCE A DAY
     Dates: start: 20030825, end: 20040825

REACTIONS (7)
  - CHEST PAIN [None]
  - FATIGUE [None]
  - HEADACHE [None]
  - LOSS OF CONSCIOUSNESS [None]
  - MUSCLE SPASMS [None]
  - PAIN [None]
  - RENAL PAIN [None]
